FAERS Safety Report 12911599 (Version 1)
Quarter: 2016Q4

REPORT INFORMATION
  Report Type: Spontaneous
  Country: US (occurrence: US)
  Receive Date: 20161102
  Receipt Date: 20161102
  Transmission Date: 20170207
  Serious: Yes (Hospitalization)
  Sender: FDA-Public Use
  Company Number: None

PATIENT
  Age: 49 Year
  Sex: Female
  Weight: 78.3 kg

DRUGS (2)
  1. MINIVELLE [Suspect]
     Active Substance: ESTRADIOL
     Indication: OOPHORECTOMY
     Dosage: 1 PATCH(ES) TRANSDERMAL?
     Route: 062
     Dates: start: 20160922, end: 20160922
  2. ALLEGRA-D [Concomitant]
     Active Substance: FEXOFENADINE\PSEUDOEPHEDRINE

REACTIONS (2)
  - Sensation of foreign body [None]
  - Aptyalism [None]

NARRATIVE: CASE EVENT DATE: 20160922
